FAERS Safety Report 15109344 (Version 1)
Quarter: 2018Q3

REPORT INFORMATION
  Report Type: Spontaneous
  Country: DE (occurrence: DE)
  Receive Date: 20180705
  Receipt Date: 20180705
  Transmission Date: 20181010
  Serious: Yes (Death)
  Sender: FDA-Public Use
  Company Number: DE-PERRIGO-18DE006781

PATIENT
  Age: 25 Year
  Sex: Female

DRUGS (5)
  1. LOPERAMIDE HYDROCHLORIDE. [Suspect]
     Active Substance: LOPERAMIDE HYDROCHLORIDE
     Indication: DIARRHOEA
     Dosage: 4 MG, SINGLE AT 0000
     Route: 048
  2. CONTRACEPTIVES [Concomitant]
     Active Substance: UNSPECIFIED INGREDIENT
     Indication: CONTRACEPTION
     Dosage: UNK, UNK
     Route: 048
  3. LOPERAMIDE HYDROCHLORIDE. [Suspect]
     Active Substance: LOPERAMIDE HYDROCHLORIDE
     Dosage: 2 MG, SINGLE AT 0600
     Route: 048
  4. QUININE /00046711/ [Suspect]
     Active Substance: QUININE HYDROCHLORIDE
     Indication: FLUID REPLACEMENT
     Dosage: 170 MG, SINGLE
     Route: 048
  5. IBUPROFEN. [Concomitant]
     Active Substance: IBUPROFEN
     Indication: PAIN
     Dosage: 600 MG, SINGLE
     Route: 048

REACTIONS (5)
  - Brain injury [Fatal]
  - Aspiration [Fatal]
  - Inhibitory drug interaction [Fatal]
  - Coma [Fatal]
  - Cardiac arrest [Fatal]
